FAERS Safety Report 4665682-8 (Version None)
Quarter: 2005Q2

REPORT INFORMATION
  Report Type: 
  Country: None (occurrence: None)
  Receive Date: 20050517
  Receipt Date: 20050517
  Transmission Date: 20051028
  Serious: No
  Sender: FDA-Public Use
  Company Number: None

PATIENT
  Sex: Male
  Weight: 74.5 kg

DRUGS (3)
  1. FLUDARABINE [Suspect]
     Indication: NON-HODGKIN'S LYMPHOMA
     Dosage: 60 MG IV QD X 5 DOSES
     Route: 042
     Dates: start: 20040330
  2. BUSULFAN [Suspect]
     Dosage: 70 MH IV Q6HX 8 DOSES
     Route: 042
  3. ATG [Suspect]
     Dosage: IV QDX 4 DOSES
     Route: 042

REACTIONS (4)
  - CYTOMEGALOVIRUS INFECTION [None]
  - DIARRHOEA [None]
  - FAILURE TO THRIVE [None]
  - RENAL FAILURE [None]
